FAERS Safety Report 18529440 (Version 1)
Quarter: 2020Q4

REPORT INFORMATION
  Report Type: Other
  Country: SA (occurrence: SA)
  Receive Date: 20201120
  Receipt Date: 20201120
  Transmission Date: 20210114
  Serious: Yes (Hospitalization)
  Sender: FDA-Public Use
  Company Number: SA-NOSTRUM LABORATORIES, INC.-2096133

PATIENT
  Age: 22 Year
  Sex: Male

DRUGS (1)
  1. CARBAMAZEPINE EXTENDED-RELEASE [Suspect]
     Active Substance: CARBAMAZEPINE
     Indication: INTENTIONAL OVERDOSE
     Route: 048

REACTIONS (4)
  - Bezoar [Recovered/Resolved]
  - Intentional overdose [Recovered/Resolved]
  - Small intestinal obstruction [Recovered/Resolved]
  - Laparoscopy [Recovered/Resolved]
